FAERS Safety Report 4628146-3 (Version None)
Quarter: 2005Q2

REPORT INFORMATION
  Report Type: 
  Country: None (occurrence: None)
  Receive Date: 20050404
  Receipt Date: 20050324
  Transmission Date: 20051028
  Serious: Yes (Hospitalization)
  Sender: FDA-Public Use
  Company Number: 2005023706

PATIENT
  Age: 78 Year
  Sex: Female
  Weight: 50 kg

DRUGS (8)
  1. CELEBREX [Suspect]
     Indication: OSTEOARTHRITIS
     Dosage: 1 IN 1 D, ORAL
     Route: 048
     Dates: start: 20041013, end: 20041113
  2. HEXAQUINE (NIAOULI OIL, QUINIE BENZOATE, THIAMINE HYDROCHLORIDE) [Suspect]
     Indication: ILL-DEFINED DISORDER
     Dosage: 1 DOSE FORM (1 IN 1 D), ORAL
     Route: 048
     Dates: start: 20041013, end: 20041113
  3. ALENDRONIC ACID (ALENDRONIC ACID) [Concomitant]
  4. NAFTAZONE (NAFTAZONE) [Concomitant]
  5. CELIPROLOL (CELIPROLOL) [Concomitant]
  6. OMEPRAZOLE [Concomitant]
  7. ACETAMINOPHEN AND TRAMADOL HCL [Concomitant]
  8. CALCIUM CARBONATE/COLECALCIFEROL (CALCIUM CARBONATE, COLECALCIFEROL) [Concomitant]

REACTIONS (9)
  - DERMATITIS BULLOUS [None]
  - ECCHYMOSIS [None]
  - HAEMATOCRIT DECREASED [None]
  - INFECTION [None]
  - LABORATORY TEST ABNORMAL [None]
  - PETECHIAE [None]
  - PURPURA [None]
  - RED BLOOD CELL COUNT DECREASED [None]
  - THROMBOCYTOPENIC PURPURA [None]
